FAERS Safety Report 14369485 (Version 2)
Quarter: 2018Q4

REPORT INFORMATION
  Report Type: Report from Study
  Country: US (occurrence: US)
  Receive Date: 20180110
  Receipt Date: 20181109
  Transmission Date: 20190204
  Serious: Yes (Other)
  Sender: FDA-Public Use
  Company Number: US-CIPLA LTD.-2018US00522

PATIENT

DRUGS (1)
  1. TOPOTECAN [Suspect]
     Active Substance: TOPOTECAN HYDROCHLORIDE
     Indication: THYMOMA
     Dosage: 1 MG/M2, ON DAYS 1 TO 5, 21-DAY CYCLES
     Route: 042

REACTIONS (4)
  - Malignant neoplasm progression [Unknown]
  - Lymphopenia [Unknown]
  - Anaemia [Unknown]
  - Genotoxicity [Unknown]
